FAERS Safety Report 13836608 (Version 1)
Quarter: 2017Q3

REPORT INFORMATION
  Report Type: Spontaneous
  Country: US (occurrence: US)
  Receive Date: 20170804
  Receipt Date: 20170804
  Transmission Date: 20171127
  Serious: No
  Sender: FDA-Public Use
  Company Number: US-ROCHE-1053282

PATIENT
  Sex: Female

DRUGS (3)
  1. BONIVA [Suspect]
     Active Substance: IBANDRONATE SODIUM
     Indication: OSTEOPOROSIS
  2. VITAMINS [Concomitant]
     Active Substance: VITAMINS
  3. CALCIUM W VIT D PLUS ZINC [Concomitant]

REACTIONS (6)
  - Insomnia [Unknown]
  - Hunger [Unknown]
  - Hair texture abnormal [Unknown]
  - Flatulence [Unknown]
  - Increased appetite [Unknown]
  - Skin discolouration [Unknown]
